FAERS Safety Report 21774101 (Version 1)
Quarter: 2022Q4

REPORT INFORMATION
  Report Type: Spontaneous
  Country: US (occurrence: US)
  Receive Date: 20221223
  Receipt Date: 20221223
  Transmission Date: 20230113
  Serious: Yes (Death, Other)
  Sender: FDA-Public Use
  Company Number: US-GILEAD-2022-0610534

PATIENT
  Age: 64 Year
  Sex: Male

DRUGS (2)
  1. VEKLURY [Suspect]
     Active Substance: REMDESIVIR
     Indication: COVID-19
     Route: 065
  2. DEXAMETHASONE [Suspect]
     Active Substance: DEXAMETHASONE
     Indication: Product used for unknown indication
     Route: 065

REACTIONS (7)
  - Acute respiratory failure [Fatal]
  - Cerebrovascular accident [Unknown]
  - Brain oedema [Unknown]
  - Cognitive disorder [Unknown]
  - Organ failure [Unknown]
  - Pneumothorax [Unknown]
  - Pain [Unknown]

NARRATIVE: CASE EVENT DATE: 20210909
